FAERS Safety Report 8027831-3 (Version None)
Quarter: 2012Q1

REPORT INFORMATION
  Report Type: 
  Country: None (occurrence: None)
  Receive Date: 20120106
  Receipt Date: 20111229
  Transmission Date: 20120608
  Serious: Yes (Other)
  Sender: FDA-Public Use
  Company Number: US-BAYER-2012-000083

PATIENT
  Sex: Female

DRUGS (2)
  1. YASMIN [Suspect]
     Dosage: UNK
     Dates: start: 20020101, end: 20101101
  2. YAZ [Suspect]
     Dosage: UNK
     Dates: start: 20020101, end: 20101101

REACTIONS (4)
  - EMOTIONAL DISTRESS [None]
  - INJURY [None]
  - PAIN [None]
  - GALLBLADDER DISORDER [None]
